FAERS Safety Report 6701614-6 (Version None)
Quarter: 2010Q2

REPORT INFORMATION
  Report Type: 
  Country: None (occurrence: None)
  Receive Date: 20100429
  Receipt Date: 20100414
  Transmission Date: 20101027
  Serious: Yes (Other)
  Sender: FDA-Public Use
  Company Number: FR-PFIZER INC-2010045529

PATIENT
  Age: 65 Year
  Sex: Female

DRUGS (3)
  1. ALDACTONE [Suspect]
     Indication: HYPERTENSION
     Dosage: 50 MG,DAILY
     Dates: start: 20090301, end: 20100414
  2. ALDACTONE [Suspect]
     Dosage: 25 MG, 2X/DAY
     Dates: start: 20100414
  3. AMLOR [Suspect]
     Indication: HYPERTENSION
     Dosage: UNK
     Dates: start: 20100301, end: 20100401

REACTIONS (4)
  - PALPITATIONS [None]
  - PARAESTHESIA [None]
  - TREMOR [None]
  - VERTIGO [None]
